FAERS Safety Report 8488793-8 (Version None)
Quarter: 2012Q3

REPORT INFORMATION
  Report Type: 
  Country: None (occurrence: None)
  Receive Date: 20120705
  Receipt Date: 20120627
  Transmission Date: 20120928
  Serious: Yes (Other)
  Sender: FDA-Public Use
  Company Number: CN-PFIZER INC-2012154338

PATIENT
  Age: 71 Year
  Sex: Male

DRUGS (2)
  1. VORICONAZOLE [Suspect]
     Indication: BRONCHOPULMONARY ASPERGILLOSIS
     Dosage: 300 MG, 2X/DAY
     Route: 041
  2. VORICONAZOLE [Suspect]
     Dosage: 200 MG, 2X/DAY
     Route: 041

REACTIONS (2)
  - RENAL FAILURE ACUTE [None]
  - RESPIRATORY FAILURE [None]
